FAERS Safety Report 18131166 (Version 1)
Quarter: 2020Q3

REPORT INFORMATION
  Report Type: Spontaneous
  Country: US (occurrence: US)
  Receive Date: 20200810
  Receipt Date: 20200810
  Transmission Date: 20201103
  Serious: Yes (Other)
  Sender: FDA-Public Use
  Company Number: US-PURDUE-USA-2020-0160573

PATIENT
  Sex: Male

DRUGS (2)
  1. HYDROCODONE BITARTRATE AND ACETAMINOPHEN [Suspect]
     Active Substance: ACETAMINOPHEN\HYDROCODONE BITARTRATE
     Indication: LIMB OPERATION
     Dosage: UNK
     Route: 048
  2. HYDROCODONE BITARTRATE AND ACETAMINOPHEN [Suspect]
     Active Substance: ACETAMINOPHEN\HYDROCODONE BITARTRATE
     Indication: LIMB INJURY

REACTIONS (8)
  - Overdose [Unknown]
  - Withdrawal syndrome [Unknown]
  - Apnoea [Unknown]
  - Drug dependence [Unknown]
  - Developmental delay [Unknown]
  - Brain injury [Unknown]
  - Amnesia [Not Recovered/Not Resolved]
  - Learning disability [Unknown]
